FAERS Safety Report 17187777 (Version 3)
Quarter: 2020Q3

REPORT INFORMATION
  Report Type: Report from Study
  Country: AU (occurrence: AU)
  Receive Date: 20191221
  Receipt Date: 20200709
  Transmission Date: 20201102
  Serious: Yes (Other)
  Sender: FDA-Public Use
  Company Number: AU-ROCHE-2502659

PATIENT
  Age: 74 Year
  Sex: Female

DRUGS (2)
  1. OMALIZUMAB. [Suspect]
     Active Substance: OMALIZUMAB
     Indication: URTICARIAL VASCULITIS
     Dosage: 450 MG, EVERY 4 WEEKS
     Route: 065
     Dates: start: 20191202
  2. OMALIZUMAB. [Suspect]
     Active Substance: OMALIZUMAB
     Dosage: 300 MG, TIW
     Route: 065

REACTIONS (3)
  - Inappropriate schedule of product administration [Unknown]
  - Urticarial vasculitis [Unknown]
  - Drug ineffective [Unknown]
